FAERS Safety Report 17410137 (Version 1)
Quarter: 2020Q1

REPORT INFORMATION
  Report Type: Spontaneous
  Country: JP (occurrence: JP)
  Receive Date: 20200212
  Receipt Date: 20200212
  Transmission Date: 20200409
  Serious: Yes (Hospitalization, Other)
  Sender: FDA-Public Use
  Company Number: JP-BIOMARINAP-JP-2020-128448

PATIENT
  Age: 16 Year
  Sex: Male

DRUGS (7)
  1. KUVAN [Suspect]
     Active Substance: SAPROPTERIN DIHYDROCHLORIDE
     Indication: ENZYME ABNORMALITY
     Dosage: UNK UNK, QD
     Route: 065
  2. 5-HTP [OXITRIPTAN] [Concomitant]
     Indication: PRODUCT USED FOR UNKNOWN INDICATION
     Dosage: 15 MILLIGRAM/KILOGRAM, QD
     Route: 065
  3. LEVODOPA [Concomitant]
     Active Substance: LEVODOPA
     Indication: PRODUCT USED FOR UNKNOWN INDICATION
     Dosage: 15 MILLIGRAM/KILOGRAM, QD
     Route: 065
  4. ENTACAPONE. [Concomitant]
     Active Substance: ENTACAPONE
     Indication: PRODUCT USED FOR UNKNOWN INDICATION
     Dosage: 300 MILLIGRAM, QD
     Route: 065
  5. FOLIC ACID. [Concomitant]
     Active Substance: FOLIC ACID
     Indication: PRODUCT USED FOR UNKNOWN INDICATION
     Dosage: 15 MILLIGRAM, QD
     Route: 065
  6. LEVETIRACETAM. [Concomitant]
     Active Substance: LEVETIRACETAM
     Indication: PRODUCT USED FOR UNKNOWN INDICATION
     Dosage: 300 MILLIGRAM, QD
     Route: 065
  7. KUVAN [Suspect]
     Active Substance: SAPROPTERIN DIHYDROCHLORIDE
     Dosage: 8.4 GRAM, QD
     Route: 065

REACTIONS (12)
  - Hyperreflexia [Unknown]
  - Off label use [Unknown]
  - Epilepsy [Unknown]
  - Parkinsonism [Unknown]
  - Gait spastic [Unknown]
  - Clonus [Unknown]
  - Paralysis [Recovering/Resolving]
  - Clumsiness [Unknown]
  - Intellectual disability [Unknown]
  - Akinesia [Unknown]
  - Muscle rigidity [Unknown]
  - Gait disturbance [Unknown]
